FAERS Safety Report 4515733-6 (Version None)
Quarter: 2004Q4

REPORT INFORMATION
  Report Type: 
  Country: None (occurrence: None)
  Receive Date: 20041201
  Receipt Date: 20041122
  Transmission Date: 20050328
  Serious: Yes (Life-Threatening, Hospitalization)
  Sender: FDA-Public Use
  Company Number: US-MERCK-0411USA03556

PATIENT
  Age: 73 Year
  Sex: Female

DRUGS (5)
  1. VIOXX [Suspect]
     Indication: ARTHRITIS
     Route: 048
     Dates: end: 20040903
  2. ZETIA [Concomitant]
     Route: 065
  3. LISINOPRIL [Concomitant]
     Route: 065
  4. LASIX [Concomitant]
     Route: 065
  5. BLOOD THINNER (UNSPECIFIED) [Concomitant]
     Route: 065

REACTIONS (3)
  - DYSPNOEA [None]
  - LUNG DISORDER [None]
  - PULMONARY OEDEMA [None]
